FAERS Safety Report 17067985 (Version 1)
Quarter: 2019Q4

REPORT INFORMATION
  Report Type: Spontaneous
  Country: US (occurrence: US)
  Receive Date: 20191122
  Receipt Date: 20191122
  Transmission Date: 20200122
  Serious: No
  Sender: FDA-Public Use
  Company Number: US-TARO-2019TAR00695

PATIENT
  Sex: Female

DRUGS (1)
  1. BUTENAFINE HYDROCHLORIDE [Suspect]
     Active Substance: BUTENAFINE HYDROCHLORIDE
     Indication: TINEA PEDIS
     Dosage: UNK UNK, 2X/DAY
     Route: 061
     Dates: start: 20190927

REACTIONS (1)
  - Drug ineffective [Not Recovered/Not Resolved]

NARRATIVE: CASE EVENT DATE: 20190927
